FAERS Safety Report 15262365 (Version 2)
Quarter: 2018Q3

REPORT INFORMATION
  Report Type: Spontaneous
  Country: US (occurrence: US)
  Receive Date: 20180809
  Receipt Date: 20180823
  Transmission Date: 20181010
  Serious: No
  Sender: FDA-Public Use
  Company Number: US-TEVA-2018-US-937060

PATIENT
  Age: 1 Decade

DRUGS (1)
  1. AMPHETAMINE W/DEXTROAMPHETAMINE [Suspect]
     Active Substance: AMPHETAMINE SULFATE\DEXTROAMPHETAMINE
     Indication: ATTENTION DEFICIT/HYPERACTIVITY DISORDER
     Route: 065

REACTIONS (6)
  - Product shape issue [Unknown]
  - Product taste abnormal [Unknown]
  - Product counterfeit [Unknown]
  - Weight increased [Unknown]
  - Drug ineffective [Unknown]
  - Expired product administered [Unknown]
